FAERS Safety Report 9372074 (Version 1)
Quarter: 2013Q2

REPORT INFORMATION
  Report Type: Spontaneous
  Country: AU (occurrence: None)
  Receive Date: 20130624
  Receipt Date: 20130624
  Transmission Date: 20140414
  Serious: Yes (Other)
  Sender: FDA-Public Use
  Company Number: 2013P1008810

PATIENT
  Age: 19 Year
  Sex: Male

DRUGS (2)
  1. RIFAMPIN [Suspect]
     Indication: MYCOBACTERIUM ULCERANS INFECTION
     Route: 048
  2. MOXIFLOXACIN [Suspect]
     Indication: MYCOBACTERIUM ULCERANS INFECTION
     Route: 048

REACTIONS (5)
  - General physical health deterioration [None]
  - Mycobacterium ulcerans infection [None]
  - Condition aggravated [None]
  - Paradoxical drug reaction [None]
  - Skin graft [None]
